FAERS Safety Report 5271501-1 (Version None)
Quarter: 2007Q1

REPORT INFORMATION
  Report Type: 
  Country: None (occurrence: None)
  Receive Date: 20070316
  Receipt Date: 20070305
  Transmission Date: 20070707
  Serious: Yes (Life-Threatening)
  Sender: FDA-Public Use
  Company Number: CERZ-11552

PATIENT
  Age: 77 Year
  Sex: Female
  Weight: 62.1 kg

DRUGS (8)
  1. CEREZYME [Suspect]
     Indication: GAUCHER'S DISEASE
     Dosage: 3900 UNITS Q2WKS IV
     Route: 030
     Dates: start: 20060210
  2. SYNTHROID [Concomitant]
  3. GLUCOTROL [Concomitant]
  4. ACTOS [Concomitant]
  5. ZETIA [Concomitant]
  6. LISINOPRIL [Concomitant]
  7. FOSAMAX [Concomitant]
  8. PREMARIN [Concomitant]

REACTIONS (2)
  - MULTIPLE MYELOMA [None]
  - PROTEINURIA [None]
